FAERS Safety Report 17642654 (Version 1)
Quarter: 2020Q2

REPORT INFORMATION
  Report Type: Spontaneous
  Country: US (occurrence: US)
  Receive Date: 20200408
  Receipt Date: 20200408
  Transmission Date: 20200713
  Serious: Yes (Other)
  Sender: FDA-Public Use
  Company Number: US-ALLERGAN-1927242US

PATIENT
  Sex: Female

DRUGS (1)
  1. LILETTA [Suspect]
     Active Substance: LEVONORGESTREL
     Indication: MENSTRUAL DISORDER
     Dosage: 52 MG, SINGLE
     Route: 015

REACTIONS (7)
  - Off label use [Unknown]
  - Nausea [Unknown]
  - Haemorrhage [Unknown]
  - Syncope [Unknown]
  - Pelvic pain [Unknown]
  - Vaginal discharge [Unknown]
  - Dizziness [Unknown]

NARRATIVE: CASE EVENT DATE: 20190629
